FAERS Safety Report 5114988-7 (Version None)
Quarter: 2006Q3

REPORT INFORMATION
  Report Type: 
  Country: None (occurrence: None)
  Receive Date: 20060922
  Receipt Date: 20060908
  Transmission Date: 20061208
  Serious: Yes (Other)
  Sender: FDA-Public Use
  Company Number: US-2006-003843

PATIENT
  Age: 43 Year
  Sex: Female
  Weight: 52.2 kg

DRUGS (10)
  1. BETASERON [Suspect]
     Indication: RELAPSING-REMITTING MULTIPLE SCLEROSIS
     Dosage: SEE IMAGE
     Route: 058
     Dates: start: 19900101, end: 20060201
  2. BETASERON [Suspect]
     Indication: RELAPSING-REMITTING MULTIPLE SCLEROSIS
     Dosage: SEE IMAGE
     Route: 058
     Dates: start: 20060201
  3. ELAVIL [Concomitant]
  4. MODAFINIL [Concomitant]
  5. MOTRIN [Concomitant]
  6. PRILOSEC [Concomitant]
  7. MVI (VITAMINS NOS) [Concomitant]
  8. DICYCLOMINE [Concomitant]
  9. ZYRTEK (CETIRIZINE HYDROCHLORIDE) [Concomitant]
  10. FLONASE [Concomitant]

REACTIONS (11)
  - ASTHENIA [None]
  - FATIGUE [None]
  - HYPOAESTHESIA [None]
  - INJECTION SITE ATROPHY [None]
  - INJECTION SITE NERVE DAMAGE [None]
  - INJURY [None]
  - INSOMNIA [None]
  - NERVE INJURY [None]
  - NEUROPATHY PERIPHERAL [None]
  - PAIN IN EXTREMITY [None]
  - RADIAL NERVE PALSY [None]
